FAERS Safety Report 11816542 (Version 2)
Quarter: 2016Q1

REPORT INFORMATION
  Report Type: Spontaneous
  Country: US (occurrence: US)
  Receive Date: 20151210
  Receipt Date: 20160124
  Transmission Date: 20160525
  Serious: Yes (Hospitalization)
  Sender: FDA-Public Use
  Company Number: US-AMGEN-USASP2015130399

PATIENT
  Age: 52 Year
  Sex: Female

DRUGS (5)
  1. METHOTREXATE [Concomitant]
     Active Substance: METHOTREXATE
     Dosage: UNK
  2. FOLIC ACID. [Concomitant]
     Active Substance: FOLIC ACID
     Dosage: UNK
  3. PREDNISONE. [Concomitant]
     Active Substance: PREDNISONE
     Dosage: UNK
  4. ENBREL [Suspect]
     Active Substance: ETANERCEPT
     Indication: RHEUMATOID ARTHRITIS
     Dosage: 50 MG, QWK
     Route: 065
     Dates: start: 2006
  5. CLARITIN [Concomitant]
     Active Substance: LORATADINE
     Indication: HYPERSENSITIVITY
     Dosage: UNK UNK, QD

REACTIONS (5)
  - Surgery [Unknown]
  - Injection site pain [Unknown]
  - Hospitalisation [Unknown]
  - Injection site bruising [Unknown]
  - Device issue [Unknown]
